FAERS Safety Report 14280198 (Version 2)
Quarter: 2017Q4

REPORT INFORMATION
  Report Type: Spontaneous
  Country: IT (occurrence: IT)
  Receive Date: 20171212
  Receipt Date: 20171220
  Transmission Date: 20180321
  Serious: Yes (Hospitalization)
  Sender: FDA-Public Use
  Company Number: IT-ABBVIE-17P-083-2188384-00

PATIENT
  Age: 64 Year
  Sex: Male

DRUGS (4)
  1. VENETOCLAX. [Suspect]
     Active Substance: VENETOCLAX
     Indication: CHRONIC LYMPHOCYTIC LEUKAEMIA
     Route: 048
     Dates: start: 20170405, end: 20170629
  2. NORVASC [Concomitant]
     Active Substance: AMLODIPINE BESYLATE
     Indication: HYPERTENSION
     Route: 048
  3. DOBETIN 5000 MICROGRAMMI/2 ML SOLUZIONE INIETTABILE PER USO INTRAMUSCO [Concomitant]
     Indication: ANAEMIA VITAMIN B12 DEFICIENCY
     Route: 030
  4. ALLOPURINOLO [Concomitant]
     Active Substance: ALLOPURINOL
     Indication: HYPERURICAEMIA
     Route: 048

REACTIONS (2)
  - Dyspnoea exertional [Recovered/Resolved]
  - Asthenia [Recovered/Resolved]

NARRATIVE: CASE EVENT DATE: 20170629
